FAERS Safety Report 5222223-4 (Version None)
Quarter: 2007Q1

REPORT INFORMATION
  Report Type: 
  Country: None (occurrence: None)
  Receive Date: 20070129
  Receipt Date: 20061006
  Transmission Date: 20070707
  Serious: No
  Sender: FDA-Public Use
  Company Number: 23 5972 K06 USA

PATIENT
  Age: 26 Year
  Sex: Female

DRUGS (2)
  1. WELLBUTRIN [Suspect]
     Indication: DRUG USE FOR UNKNOWN INDICATION
     Route: 048
  2. REBIF [Suspect]
     Dosage: 44MCG THREE TIMES PER WEEK
     Route: 058
     Dates: start: 20060810

REACTIONS (1)
  - DIZZINESS [None]
